FAERS Safety Report 9256932 (Version 3)
Quarter: 2014Q1

REPORT INFORMATION
  Report Type: Spontaneous
  Country: US (occurrence: US)
  Receive Date: 20130426
  Receipt Date: 20140108
  Transmission Date: 20141002
  Serious: Yes (Hospitalization, Other)
  Sender: FDA-Public Use
  Company Number: US-ASTRAZENECA-2013SE27815

PATIENT
  Age: 42 Year
  Sex: Female

DRUGS (11)
  1. NEXIUM [Suspect]
     Indication: GASTROINTESTINAL DISORDER
     Dosage: DAILY
     Route: 048
     Dates: start: 2000
  2. NEXIUM [Suspect]
     Indication: GASTROINTESTINAL DISORDER
     Route: 048
     Dates: start: 20030428
  3. PREVACID [Concomitant]
     Route: 048
  4. LORATAB [Concomitant]
     Indication: MULTIPLE FRACTURES
  5. LORATAB [Concomitant]
     Indication: SPINAL FRACTURE
  6. LIPITOR [Concomitant]
  7. CRESTOR [Concomitant]
  8. BLOOD PRESSURE MEDICATION [Concomitant]
  9. NAPROXEN [Concomitant]
  10. TUMS [Concomitant]
  11. ESTRACE [Concomitant]
     Route: 048

REACTIONS (13)
  - Cerebrovascular accident [Unknown]
  - Neoplasm malignant [Unknown]
  - Uterine disorder [Unknown]
  - Breast disorder [Unknown]
  - Back disorder [Unknown]
  - Ovarian cancer [Unknown]
  - Osteoporosis [Unknown]
  - Bone disorder [Unknown]
  - Multiple fractures [Unknown]
  - Calcium deficiency [Unknown]
  - Arthritis [Unknown]
  - Exostosis [Unknown]
  - Hand fracture [Unknown]
